FAERS Safety Report 7117413-X (Version None)
Quarter: 2010Q4

REPORT INFORMATION
  Report Type: 
  Country: None (occurrence: None)
  Receive Date: 20101122
  Receipt Date: 20101117
  Transmission Date: 20110411
  Serious: Yes (Death)
  Sender: FDA-Public Use
  Company Number: PHHY2010US78282

PATIENT
  Sex: Male

DRUGS (1)
  1. GLEEVEC [Suspect]
     Indication: COLON CANCER
     Dosage: 400 MG, UNK
     Route: 048
     Dates: start: 20100609

REACTIONS (1)
  - DEATH [None]
